FAERS Safety Report 20551931 (Version 1)
Quarter: 2022Q1

REPORT INFORMATION
  Report Type: Spontaneous
  Country: US (occurrence: US)
  Receive Date: 20220304
  Receipt Date: 20220304
  Transmission Date: 20220424
  Serious: Yes (Death, Hospitalization, Other)
  Sender: FDA-Public Use
  Company Number: US-BION-010343

PATIENT
  Age: 71 Year
  Sex: Male

DRUGS (1)
  1. AMANTADINE HYDROCHLORIDE [Suspect]
     Active Substance: AMANTADINE HYDROCHLORIDE
     Indication: Upper respiratory tract infection
     Dosage: 100 MG TO BE TAKEN TWICE DAILY FOR 10 DAYS

REACTIONS (2)
  - Cardiac arrest [Fatal]
  - Product use in unapproved indication [Not Recovered/Not Resolved]
